FAERS Safety Report 7868028-7 (Version None)
Quarter: 2011Q4

REPORT INFORMATION
  Report Type: 
  Country: None (occurrence: None)
  Receive Date: 20111028
  Receipt Date: 20111026
  Transmission Date: 20120403
  Serious: Yes (Death, Hospitalization)
  Sender: FDA-Public Use
  Company Number: US-B.I. PHARMACEUTICALS,INC./RIDGEFIELD-2011-BP-20670BP

PATIENT
  Sex: Male

DRUGS (11)
  1. POTASSIUM [Concomitant]
     Dosage: 10 MEQ
  2. LIPITOR [Concomitant]
     Dosage: 20 MG
  3. ONGLYZA [Concomitant]
     Dosage: 5 MG
  4. JANTOVEN (WAYFARIN) [Concomitant]
     Dosage: 10 MG
     Dates: end: 20110628
  5. FUROSEMIDE [Concomitant]
     Dosage: 40 MG
  6. METOPROLOL TARTRATE [Concomitant]
     Dosage: 200 MG
  7. GLIMEPIRIDE [Concomitant]
     Dosage: 8 MG
  8. PRADAXA [Suspect]
     Dosage: 150 MG
     Dates: start: 20110601
  9. NIACIN [Concomitant]
     Dosage: 500 MG
  10. METFORMIN [Concomitant]
     Dosage: 1500 MG
  11. LISINOPRIL [Concomitant]
     Dosage: 10 MG

REACTIONS (4)
  - BLOOD PRESSURE SYSTOLIC INCREASED [None]
  - BRAIN DEATH [None]
  - CEREBRAL HAEMORRHAGE [None]
  - PLANTAR FASCIITIS [None]
